FAERS Safety Report 13859406 (Version 1)
Quarter: 2017Q3

REPORT INFORMATION
  Report Type: Spontaneous
  Country: US (occurrence: US)
  Receive Date: 20170811
  Receipt Date: 20170811
  Transmission Date: 20171127
  Serious: No
  Sender: FDA-Public Use
  Company Number: US-PERRIGO-17US023349

PATIENT
  Age: 93 Year
  Sex: Female
  Weight: 45.35 kg

DRUGS (4)
  1. MIACALCIN [Concomitant]
     Active Substance: CALCITONIN SALMON
     Indication: NASAL CONGESTION
     Dosage: UNKNOWN, UNKNOWN
     Route: 065
  2. ANTIHYPERTENSIVES [Concomitant]
     Active Substance: UNSPECIFIED INGREDIENT
     Indication: HYPERTENSION
     Dosage: UNKNOWN, UNKNOWN
     Route: 048
  3. LORATADINE. [Suspect]
     Active Substance: LORATADINE
     Indication: NASAL CONGESTION
     Dosage: 10 MG, QD
     Route: 048
     Dates: start: 20170430, end: 20170502
  4. DIURETICS [Concomitant]
     Active Substance: UNSPECIFIED INGREDIENT
     Indication: FLUID RETENTION
     Dosage: UNKNOWN, UNKNOWN
     Route: 048

REACTIONS (1)
  - Drug ineffective for unapproved indication [Unknown]

NARRATIVE: CASE EVENT DATE: 20170430
